FAERS Safety Report 13954859 (Version 1)
Quarter: 2017Q3

REPORT INFORMATION
  Report Type: Spontaneous
  Country: US (occurrence: US)
  Receive Date: 20170911
  Receipt Date: 20170911
  Transmission Date: 20171128
  Serious: No
  Sender: FDA-Public Use
  Company Number: US-BRAINTREE LABORATORIES-160706

PATIENT
  Age: 63 Year
  Sex: Female
  Weight: 99.79 kg

DRUGS (1)
  1. SUPREP BOWEL PREP [Suspect]
     Active Substance: MAGNESIUM SULFATE\POTASSIUM SULFATE\SODIUM SULFATE
     Indication: COLONOSCOPY
     Dosage: 2 X 6 OZ. BOTTLE
     Route: 048
     Dates: start: 20160907, end: 20160908

REACTIONS (7)
  - Muscle spasms [None]
  - Tremor [None]
  - Drug ineffective [None]
  - Malaise [None]
  - Headache [None]
  - Vomiting [None]
  - Abdominal distension [None]

NARRATIVE: CASE EVENT DATE: 20160907
